FAERS Safety Report 15713631 (Version 2)
Quarter: 2018Q4

REPORT INFORMATION
  Report Type: Spontaneous
  Country: US (occurrence: US)
  Receive Date: 20181212
  Receipt Date: 20181213
  Transmission Date: 20190205
  Serious: No
  Sender: FDA-Public Use
  Company Number: US-PFIZER INC-2018508089

PATIENT
  Age: 46 Year
  Sex: Female
  Weight: 91 kg

DRUGS (3)
  1. LEVEMIR [Concomitant]
     Active Substance: INSULIN DETEMIR
     Dosage: 1 DF, 2X/DAY  [2 SHOTS, ONE IN THE MORNING AND ONE AT NIGHT]
  2. HUMALOG [Concomitant]
     Active Substance: INSULIN LISPRO
     Dosage: 1 DF, 3X/DAY [3 SHOTS,(BREAKFAST, LUNCH AND DINNER)]
  3. LYRICA [Suspect]
     Active Substance: PREGABALIN
     Indication: DIABETIC NEUROPATHY
     Dosage: 150 MG, 2X/DAY
     Route: 048

REACTIONS (4)
  - Feeling abnormal [Unknown]
  - Glycosylated haemoglobin increased [Unknown]
  - Discomfort [Unknown]
  - Blood cholesterol increased [Unknown]
